FAERS Safety Report 23860668 (Version 1)
Quarter: 2024Q2

REPORT INFORMATION
  Report Type: Spontaneous
  Country: US (occurrence: US)
  Receive Date: 20240516
  Receipt Date: 20240516
  Transmission Date: 20240716
  Serious: No
  Sender: FDA-Public Use
  Company Number: US-IPSEN Group, Research and Development-2024-08175

PATIENT
  Sex: Female

DRUGS (3)
  1. DYSPORT [Suspect]
     Active Substance: ABOBOTULINUMTOXINA
     Indication: Skin cosmetic procedure
     Route: 065
     Dates: start: 20240419, end: 20240419
  2. HYALURONIC ACID\LIDOCAINE [Suspect]
     Active Substance: HYALURONIC ACID\LIDOCAINE
     Route: 065
     Dates: start: 20240419
  3. POLYLACTIDE, L- [Suspect]
     Active Substance: POLYLACTIDE, L-
     Route: 065
     Dates: start: 20240419

REACTIONS (2)
  - Periorbital pain [Unknown]
  - Periorbital oedema [Unknown]

NARRATIVE: CASE EVENT DATE: 20240101
